FAERS Safety Report 4387450-7 (Version None)
Quarter: 2004Q2

REPORT INFORMATION
  Report Type: 
  Country: None (occurrence: None)
  Receive Date: 20040630
  Receipt Date: 20031224
  Transmission Date: 20050107
  Serious: No
  Sender: FDA-Public Use
  Company Number: US-BRISTOL-MYERS SQUIBB COMPANY-12464939

PATIENT
  Age: 49 Year
  Sex: Male

DRUGS (2)
  1. REYATAZ [Suspect]
     Indication: HIV INFECTION
     Route: 048
  2. RITONAVIR [Concomitant]

REACTIONS (1)
  - HYPERBILIRUBINAEMIA [None]
